FAERS Safety Report 4548157-6 (Version None)
Quarter: 2005Q1

REPORT INFORMATION
  Report Type: 
  Country: None (occurrence: None)
  Receive Date: 20050110
  Receipt Date: 20050103
  Transmission Date: 20050727
  Serious: Yes (Hospitalization)
  Sender: FDA-Public Use
  Company Number: US-BRISTOL-MYERS SQUIBB COMPANY-12811600

PATIENT
  Age: 51 Year
  Sex: Female
  Weight: 72 kg

DRUGS (5)
  1. ERBITUX [Suspect]
     Indication: COLORECTAL CANCER METASTATIC
     Dosage: ^CHEMOTHERAPY^ WAS HELD LAST WEEK (DECEMBER 2004).
     Route: 042
     Dates: start: 20041201, end: 20041201
  2. BENADRYL [Concomitant]
     Indication: PREMEDICATION
     Route: 042
     Dates: start: 20041201, end: 20041201
  3. COMPAZINE [Concomitant]
     Indication: PREMEDICATION
     Route: 048
     Dates: start: 20041201, end: 20041201
  4. HYDROCORTISONE [Concomitant]
     Indication: PREMEDICATION
     Route: 042
     Dates: start: 20041201, end: 20041201
  5. ZANTAC [Concomitant]
     Indication: PREMEDICATION
     Route: 042
     Dates: start: 20041201, end: 20041201

REACTIONS (1)
  - GALLBLADDER DISORDER [None]
